FAERS Safety Report 5101754-1 (Version None)
Quarter: 2006Q3

REPORT INFORMATION
  Report Type: 
  Country: None (occurrence: None)
  Receive Date: 20060911
  Receipt Date: 20060901
  Transmission Date: 20061208
  Serious: Yes (Hospitalization)
  Sender: FDA-Public Use
  Company Number: JP-ABBOTT-06P-087-0343050-00

PATIENT
  Age: 55 Year
  Sex: Male

DRUGS (7)
  1. KALETRA [Suspect]
     Indication: HIV INFECTION
     Route: 048
     Dates: start: 20050401
  2. STAVUDINE [Concomitant]
     Indication: HIV INFECTION
     Route: 048
     Dates: start: 20050801
  3. ABACAVIR [Concomitant]
     Indication: HIV INFECTION
     Route: 048
     Dates: start: 20050801
  4. IMIPRAMINE HCL [Concomitant]
     Indication: DEPRESSION
     Route: 048
     Dates: start: 20050401, end: 20050616
  5. BROMAZEPAM [Concomitant]
     Indication: DEPRESSION
     Route: 048
     Dates: start: 20050401, end: 20050616
  6. ZOLPIDEM TARTRATE [Concomitant]
     Indication: INSOMNIA
     Route: 048
     Dates: start: 20050401
  7. MAPROTILINE HYDROCHLORIDE [Concomitant]
     Indication: INSOMNIA
     Route: 048
     Dates: start: 20050401, end: 20050616

REACTIONS (1)
  - ILEUS [None]
